FAERS Safety Report 8758679 (Version 1)
Quarter: 2012Q4

REPORT INFORMATION
  Report Type: Report from Study
  Country: US (occurrence: US)
  Receive Date: 20120829
  Receipt Date: 20120829
  Transmission Date: 20130627
  Serious: Yes (Hospitalization)
  Sender: FDA-Public Use
  Company Number: US-UCBSA-063991

PATIENT
  Age: 23 Year
  Sex: Male
  Weight: 60.3 kg

DRUGS (14)
  1. CIMZIA [Suspect]
     Indication: CROHN^S DISEASE
     Route: 058
     Dates: start: 20101226
  2. TYLENOL [Concomitant]
     Dosage: 500 - 1000 MG; ONCE A DAY
     Route: 048
  3. TYLENOL [Concomitant]
     Dosage: 500 - 1000 MG; TWICE DAILY
     Route: 048
  4. CALCIUM CARBONATE/VITAMIN D [Concomitant]
     Dosage: 2 TABLETS
     Route: 048
  5. VITAMIN B12 [Concomitant]
     Route: 058
  6. FLONASE [Concomitant]
     Dosage: 1 SPRAY IN EACH NOSTRIL
     Route: 045
  7. FOLIC ACID [Concomitant]
     Route: 048
  8. LACTINEX [Concomitant]
     Dosage: 1 CAPSULE
     Route: 048
  9. METHOTREXATE [Concomitant]
     Indication: CROHN^S DISEASE
     Route: 058
     Dates: start: 20101116
  10. MULTIMAX [Concomitant]
     Dosage: 1 TABLET
     Route: 048
  11. BOOST PLUS [Concomitant]
     Dosage: 1 CAN
     Route: 048
  12. PRILOSEC [Concomitant]
     Route: 048
  13. DELTASONE [Concomitant]
     Indication: CROHN^S DISEASE
     Route: 048
     Dates: start: 20101112
  14. ULTRAM [Concomitant]
     Dosage: 50-100 MG, ONCE IN 6 HOURS
     Route: 048

REACTIONS (1)
  - Gastroenteritis viral [Recovered/Resolved]
